FAERS Safety Report 11111030 (Version 1)
Quarter: 2015Q2

REPORT INFORMATION
  Report Type: Spontaneous
  Country: ES (occurrence: ES)
  Receive Date: 20150513
  Receipt Date: 20150513
  Transmission Date: 20150821
  Serious: Yes (Death, Hospitalization)
  Sender: FDA-Public Use
  Company Number: ES-ELI_LILLY_AND_COMPANY-ES201505001826

PATIENT
  Age: 63 Year
  Sex: Male

DRUGS (2)
  1. ALIMTA [Suspect]
     Active Substance: PEMETREXED DISODIUM
     Indication: LUNG CARCINOMA CELL TYPE UNSPECIFIED STAGE IV
     Dosage: 905 MG/5DAYS, CYCLICAL
     Route: 042
     Dates: start: 20141014, end: 20141014
  2. CISPLATIN. [Suspect]
     Active Substance: CISPLATIN
     Indication: PRODUCT USED FOR UNKNOWN INDICATION
     Dosage: 136 MG/5DAYS, CYCLICAL
     Route: 042
     Dates: start: 20141014, end: 20141014

REACTIONS (6)
  - Febrile neutropenia [Fatal]
  - Pleural effusion [Unknown]
  - Thrombocytopenia [Fatal]
  - Sepsis [Unknown]
  - Diarrhoea [Unknown]
  - Acute kidney injury [Fatal]

NARRATIVE: CASE EVENT DATE: 20141018
